FAERS Safety Report 6775304-8 (Version None)
Quarter: 2010Q2

REPORT INFORMATION
  Report Type: 
  Country: None (occurrence: None)
  Receive Date: 20100617
  Receipt Date: 20100609
  Transmission Date: 20101027
  Serious: Yes (Death, Other)
  Sender: FDA-Public Use
  Company Number: US-PFIZER INC-2010072305

PATIENT
  Sex: Female

DRUGS (1)
  1. CHANTIX [Suspect]
     Dosage: UNK
     Dates: start: 20080318

REACTIONS (6)
  - AGGRESSION [None]
  - AMNESIA [None]
  - COMPLETED SUICIDE [None]
  - CONFUSIONAL STATE [None]
  - DELUSION [None]
  - LOSS OF CONSCIOUSNESS [None]
